FAERS Safety Report 6883899-9 (Version None)
Quarter: 2010Q3

REPORT INFORMATION
  Report Type: 
  Country: None (occurrence: None)
  Receive Date: 20100729
  Receipt Date: 20100726
  Transmission Date: 20110219
  Serious: Yes (Life-Threatening, Hospitalization)
  Sender: FDA-Public Use
  Company Number: US-BRISTOL-MYERS SQUIBB COMPANY-15164684

PATIENT
  Age: 36 Year
  Sex: Female
  Weight: 86 kg

DRUGS (8)
  1. ATAZANAVIR [Suspect]
     Indication: HIV INFECTION
     Dosage: LAST DOSE 11-FEB-2010 RESTARTED ON 18MAY2010 (300MG QD)LAST DOSE ON 14JUN10; INTERRUPTED ON 15JUN10
     Route: 048
     Dates: start: 20091021
  2. COMBIVIR [Suspect]
     Indication: HIV INFECTION
     Dosage: INTERRUPTED ON 11-FEB-2010; RESTARTED ON 15APR2010
     Dates: start: 20091021
  3. LAMIVUDINE [Suspect]
     Indication: HIV INFECTION
     Dosage: LAST DOSE 14JUN10; INTERRUPTED ON 15JUN10
     Route: 048
     Dates: start: 20100518
  4. TENOFOVIR DISOPROXIL FUMARATE [Suspect]
     Indication: HIV INFECTION
     Dosage: LAST DOSE 14JUN10, INTERRUPTED ON 15JUN10
     Route: 048
     Dates: start: 20100518
  5. RITONAVIR [Suspect]
     Indication: HIV INFECTION
     Dosage: LAST DOSE 14JUN10
     Route: 048
     Dates: start: 20100518, end: 20100614
  6. FLUOXETINE [Concomitant]
     Indication: DEPRESSION
     Dosage: LAST DOSE 14JUN10
     Route: 048
     Dates: start: 20091228, end: 20100614
  7. CAPTOPRIL [Concomitant]
     Indication: HYPERTENSION
     Dosage: LAST DOSE 14JUN10
     Route: 048
     Dates: end: 20100614
  8. METFORMIN HCL [Concomitant]
     Indication: DIABETES MELLITUS
     Dosage: LAST DOSE 14JUN10
     Route: 048
     Dates: end: 20100614

REACTIONS (1)
  - HAEMOLYTIC ANAEMIA [None]
